FAERS Safety Report 5193659-5 (Version None)
Quarter: 2006Q4

REPORT INFORMATION
  Report Type: 
  Country: None (occurrence: None)
  Receive Date: 20061221
  Receipt Date: 20061206
  Transmission Date: 20070319
  Serious: Yes (Death, Hospitalization)
  Sender: FDA-Public Use
  Company Number: A-US2006-13794

PATIENT
  Age: 72 Year
  Sex: Male
  Weight: 63.9 kg

DRUGS (6)
  1. TRACLEER [Suspect]
     Indication: PULMONARY HYPERTENSION
     Dosage: ORAL
     Route: 048
     Dates: start: 20011201, end: 20060401
  2. VENTAVIS [Concomitant]
  3. LEVAQUIN [Concomitant]
  4. OCTREOTIDE ACETATE [Concomitant]
  5. PROTON PUMP INHIBITORS [Concomitant]
  6. NADOLOL [Concomitant]

REACTIONS (20)
  - ASCITES [None]
  - CHRONIC OBSTRUCTIVE PULMONARY DISEASE [None]
  - CLOSTRIDIAL INFECTION [None]
  - CONFUSIONAL STATE [None]
  - DIVERTICULUM [None]
  - FALL [None]
  - GASTROINTESTINAL HAEMORRHAGE [None]
  - GOUT [None]
  - HAEMATEMESIS [None]
  - HAEMOGLOBIN DECREASED [None]
  - HEPATIC CIRRHOSIS [None]
  - HYPOTENSION [None]
  - LUNG NEOPLASM [None]
  - OESOPHAGEAL VARICES HAEMORRHAGE [None]
  - PERITONITIS BACTERIAL [None]
  - PLEURAL EFFUSION [None]
  - PORTAL HYPERTENSION [None]
  - PORTAL HYPERTENSIVE GASTROPATHY [None]
  - RESPIRATORY FAILURE [None]
  - SLEEP APNOEA SYNDROME [None]
